FAERS Safety Report 21990520 (Version 2)
Quarter: 2023Q2

REPORT INFORMATION
  Report Type: Spontaneous
  Country: JP (occurrence: JP)
  Receive Date: 20230214
  Receipt Date: 20230525
  Transmission Date: 20230722
  Serious: Yes (Other)
  Sender: FDA-Public Use
  Company Number: JP-OTSUKA-2023_003542

PATIENT
  Age: 85 Year
  Sex: Male

DRUGS (26)
  1. SAMSCA [Suspect]
     Active Substance: TOLVAPTAN
     Indication: Cardiac failure
     Dosage: 0.5 TABLET DAILY IN ONE DOSE, 3.75 MG
     Route: 048
     Dates: end: 2022
  2. SAMSCA [Suspect]
     Active Substance: TOLVAPTAN
     Dosage: 7.5MG
     Route: 048
     Dates: start: 2022
  3. ENTRESTO [Suspect]
     Active Substance: SACUBITRIL\VALSARTAN
     Indication: Product used for unknown indication
     Dosage: 100MG
     Route: 065
     Dates: end: 202204
  4. ENTRESTO [Suspect]
     Active Substance: SACUBITRIL\VALSARTAN
     Dosage: 200MG
     Route: 065
     Dates: start: 202204, end: 2022
  5. ENTRESTO [Suspect]
     Active Substance: SACUBITRIL\VALSARTAN
     Dosage: 400MG
     Route: 065
     Dates: start: 2022
  6. CARVEDILOL [Concomitant]
     Active Substance: CARVEDILOL
     Indication: Product used for unknown indication
     Dosage: 2 TABLETS DAILY IN TWO DIVIDED DOSES, 5 MG
     Route: 048
  7. ISOSORBIDE DINITRATE [Concomitant]
     Active Substance: ISOSORBIDE DINITRATE
     Indication: Product used for unknown indication
     Dosage: 2 TABLETS DAILY IN TWO DIVIDED DOSES
     Route: 048
  8. FUROSEMIDE [Concomitant]
     Active Substance: FUROSEMIDE
     Indication: Product used for unknown indication
     Dosage: 1 TABLET DAILY IN ONE DOSE, 40 MG
     Route: 048
     Dates: start: 20220325, end: 202206
  9. FUROSEMIDE [Concomitant]
     Active Substance: FUROSEMIDE
     Dosage: 50MG
     Route: 048
     Dates: start: 202206, end: 2022
  10. FUROSEMIDE [Concomitant]
     Active Substance: FUROSEMIDE
     Dosage: 40MG
     Route: 048
     Dates: start: 2022
  11. DAPAGLIFLOZIN PROPANEDIOL [Concomitant]
     Active Substance: DAPAGLIFLOZIN PROPANEDIOL
     Indication: Product used for unknown indication
     Dosage: 1 TABLET DAILY IN ONE DOSE
     Route: 048
  12. DAPAGLIFLOZIN PROPANEDIOL [Concomitant]
     Active Substance: DAPAGLIFLOZIN PROPANEDIOL
     Dosage: 10MG
     Route: 048
  13. IRBESARTAN [Concomitant]
     Active Substance: IRBESARTAN
     Indication: Product used for unknown indication
     Dosage: 1 TABLET DAILY IN ONE DOSE, 100 MG
     Route: 048
     Dates: end: 20220404
  14. FEBUXOSTAT [Concomitant]
     Active Substance: FEBUXOSTAT
     Indication: Product used for unknown indication
     Dosage: 1 TABLET DAILY IN ONE DOSE
     Route: 048
  15. MEMANTINE HYDROCHLORIDE [Concomitant]
     Active Substance: MEMANTINE HYDROCHLORIDE
     Indication: Product used for unknown indication
     Dosage: 1 TABLET DAILY IN ONE DOSE
     Route: 048
  16. VONOPRAZAN FUMARATE [Concomitant]
     Active Substance: VONOPRAZAN FUMARATE
     Indication: Product used for unknown indication
     Dosage: 1 TABLET DAILY IN ONE DOSE
     Route: 048
  17. NITROGLYCERIN [Concomitant]
     Active Substance: NITROGLYCERIN
     Indication: Product used for unknown indication
     Dosage: 0.5GAMMA
     Route: 065
     Dates: end: 202203
  18. NITROGLYCERIN [Concomitant]
     Active Substance: NITROGLYCERIN
     Dosage: 0.5GAMMA
     Route: 065
     Dates: start: 20220325, end: 2022
  19. FUROSEMIDE [Concomitant]
     Active Substance: FUROSEMIDE
     Indication: Product used for unknown indication
     Dosage: 20MG
     Route: 042
     Dates: end: 202203
  20. FUROSEMIDE [Concomitant]
     Active Substance: FUROSEMIDE
     Dosage: 10MG
     Route: 042
     Dates: start: 202203
  21. DOBUTAMINE HYDROCHLORIDE [Concomitant]
     Active Substance: DOBUTAMINE HYDROCHLORIDE
     Indication: Product used for unknown indication
     Dosage: 2.3GAMMA
     Route: 065
     Dates: start: 20220325, end: 2022
  22. DOBUTAMINE HYDROCHLORIDE [Concomitant]
     Active Substance: DOBUTAMINE HYDROCHLORIDE
     Dosage: 1.5GAMMA
     Route: 065
     Dates: start: 2022, end: 202204
  23. CANRENOATE POTASSIUM [Concomitant]
     Active Substance: CANRENOATE POTASSIUM
     Indication: Product used for unknown indication
     Dosage: 400MG
     Route: 065
     Dates: start: 2022, end: 2022
  24. SPIRONOLACTONE [Concomitant]
     Active Substance: SPIRONOLACTONE
     Indication: Product used for unknown indication
     Dosage: 25MG
     Route: 065
     Dates: start: 2022
  25. TRICHLORMETHIAZIDE [Concomitant]
     Active Substance: TRICHLORMETHIAZIDE
     Indication: Product used for unknown indication
     Dosage: 2MG
     Route: 065
     Dates: start: 202205, end: 20220601
  26. TRICHLORMETHIAZIDE [Concomitant]
     Active Substance: TRICHLORMETHIAZIDE
     Dosage: 1MG
     Route: 065
     Dates: start: 202206

REACTIONS (6)
  - Pulmonary oedema [Recovering/Resolving]
  - Cardiac failure congestive [Recovering/Resolving]
  - Cardiac failure congestive [Recovering/Resolving]
  - Weight increased [Unknown]
  - Blood pressure increased [Unknown]
  - Underdose [Unknown]

NARRATIVE: CASE EVENT DATE: 20220101
